FAERS Safety Report 11966949 (Version 1)
Quarter: 2016Q1

REPORT INFORMATION
  Report Type: Spontaneous
  Country: US (occurrence: US)
  Receive Date: 20160127
  Receipt Date: 20160127
  Transmission Date: 20160526
  Serious: Yes (Other)
  Sender: FDA-Public Use
  Company Number: US-HERITAGE PHARMACEUTICALS-2016HTG00007

PATIENT
  Sex: Female
  Weight: 86.17 kg

DRUGS (2)
  1. LYRICA [Suspect]
     Active Substance: PREGABALIN
     Indication: TRIGEMINAL NEURALGIA
     Dosage: 300 MG, 2X/DAY
     Dates: start: 2014
  2. INDOMETHACIN. [Suspect]
     Active Substance: INDOMETHACIN

REACTIONS (7)
  - Hypersensitivity [Recovered/Resolved]
  - Weight increased [Not Recovered/Not Resolved]
  - Vision blurred [Not Recovered/Not Resolved]
  - Cognitive disorder [Recovering/Resolving]
  - Impaired work ability [Recovering/Resolving]
  - Vomiting [Recovered/Resolved]
  - Pain [Unknown]

NARRATIVE: CASE EVENT DATE: 2013
